FAERS Safety Report 10187528 (Version 1)
Quarter: 2014Q2

REPORT INFORMATION
  Report Type: Spontaneous
  Country: US (occurrence: US)
  Receive Date: 20140522
  Receipt Date: 20140522
  Transmission Date: 20141212
  Serious: No
  Sender: FDA-Public Use
  Company Number: US-SANOFI-AVENTIS-2013SA083228

PATIENT
  Age: 52 Year
  Sex: Female

DRUGS (3)
  1. LANTUS SOLOSTAR [Suspect]
     Indication: TYPE 1 DIABETES MELLITUS
     Dosage: DOSE -- 20 IN AM, 30 PM DOSE:50 UNIT(S)
     Route: 051
  2. ALL OTHER THERAPEUTIC PRODUCTS [Suspect]
     Route: 065
  3. SOLOSTAR [Concomitant]

REACTIONS (2)
  - Lung disorder [Unknown]
  - Blood glucose increased [Unknown]
